FAERS Safety Report 9209395 (Version 1)
Quarter: 2013Q2

REPORT INFORMATION
  Report Type: Spontaneous
  Country: AU (occurrence: AU)
  Receive Date: 20130404
  Receipt Date: 20130404
  Transmission Date: 20140414
  Serious: Yes (Death, Hospitalization)
  Sender: FDA-Public Use
  Company Number: AU-MYLANLABS-2013S1006759

PATIENT
  Age: 57 Year
  Sex: Male

DRUGS (12)
  1. TACROLIMUS [Suspect]
     Indication: IMMUNOSUPPRESSION
     Dosage: 4MG TWICE DAILY
     Route: 065
  2. PREDNISONE [Suspect]
     Indication: IMMUNOSUPPRESSION
     Dosage: 10MG DAILY
     Route: 065
  3. MYCOPHENOLATE [Suspect]
     Indication: IMMUNOSUPPRESSION
     Dosage: 1G TWICE DAILY
     Route: 065
  4. COTRIMOXAZOLE [Suspect]
     Indication: RHODOCOCCUS INFECTION
     Route: 048
  5. LINEZOLID [Suspect]
     Indication: RHODOCOCCUS INFECTION
     Route: 048
  6. MEROPENEM [Concomitant]
     Indication: RHODOCOCCUS INFECTION
     Route: 042
  7. MOXIFLOXACIN [Concomitant]
     Indication: RHODOCOCCUS INFECTION
     Route: 048
  8. ERTAPENEM [Concomitant]
     Indication: RHODOCOCCUS INFECTION
     Route: 042
  9. DOXYCYCLINE [Concomitant]
     Indication: RHODOCOCCUS INFECTION
     Route: 048
  10. VANCOMYCIN [Concomitant]
     Indication: RHODOCOCCUS INFECTION
     Route: 042
  11. RIFAMPICIN [Concomitant]
     Indication: RHODOCOCCUS INFECTION
     Route: 048
  12. CLARITHROMYCIN [Concomitant]
     Indication: RHODOCOCCUS INFECTION
     Route: 048

REACTIONS (4)
  - Rhodococcus infection [Recovered/Resolved]
  - Nephropathy toxic [Recovering/Resolving]
  - Bone marrow failure [Recovering/Resolving]
  - Pneumocystis jirovecii pneumonia [Fatal]
